FAERS Safety Report 16947277 (Version 1)
Quarter: 2019Q4

REPORT INFORMATION
  Report Type: Spontaneous
  Country: US (occurrence: US)
  Receive Date: 20191022
  Receipt Date: 20191022
  Transmission Date: 20200122
  Serious: No
  Sender: FDA-Public Use
  Company Number: US-BECTON DICKINSON-2018BDN00392

PATIENT

DRUGS (3)
  1. 5FR DL POWERPICC MAX BARRIER TRAY [DEVICE] [Suspect]
     Active Substance: DEVICE
  2. CHLORAPREP [Suspect]
     Active Substance: CHLORHEXIDINE GLUCONATE\ISOPROPYL ALCOHOL
     Indication: INFECTION PROPHYLAXIS
     Route: 061
  3. CHLORAPREP WITH TINT [Suspect]
     Active Substance: CHLORHEXIDINE GLUCONATE\ISOPROPYL ALCOHOL
     Indication: INFECTION PROPHYLAXIS
     Route: 061

REACTIONS (4)
  - Complication of device insertion [Unknown]
  - Tissue injury [Unknown]
  - Injury associated with device [Unknown]
  - Vascular injury [Unknown]
